FAERS Safety Report 13384121 (Version 2)
Quarter: 2017Q2

REPORT INFORMATION
  Report Type: Spontaneous
  Country: GB (occurrence: GB)
  Receive Date: 20170329
  Receipt Date: 20170613
  Transmission Date: 20170830
  Serious: Yes (Life-Threatening, Hospitalization, Disabling, Other)
  Sender: FDA-Public Use
  Company Number: GB-BRACCO-001199

PATIENT
  Age: 68 Year
  Sex: Female
  Weight: 82.55 kg

DRUGS (1)
  1. NIOPAM [Suspect]
     Active Substance: IOPAMIDOL
     Indication: COMPUTERISED TOMOGRAM
     Route: 051
     Dates: start: 20150526, end: 20150526

REACTIONS (9)
  - Dyspnoea [Not Recovered/Not Resolved]
  - Arthritis [Recovered/Resolved with Sequelae]
  - Swelling [Unknown]
  - Feeling of body temperature change [Recovered/Resolved with Sequelae]
  - Erythema [Recovered/Resolved with Sequelae]
  - Rash pruritic [Recovered/Resolved with Sequelae]
  - Nausea [Recovered/Resolved with Sequelae]
  - Pulmonary fibrosis [Unknown]
  - Pain [Not Recovered/Not Resolved]

NARRATIVE: CASE EVENT DATE: 20150526
